FAERS Safety Report 7979181-9 (Version None)
Quarter: 2011Q4

REPORT INFORMATION
  Report Type: 
  Country: None (occurrence: None)
  Receive Date: 20111214
  Receipt Date: 20111205
  Transmission Date: 20120403
  Serious: Yes (Other)
  Sender: FDA-Public Use
  Company Number: US-JNJFOC-20111202878

PATIENT
  Age: 46 Year
  Sex: Female
  Weight: 88 kg

DRUGS (10)
  1. ASPIRIN [Concomitant]
     Indication: PROPHYLAXIS
     Dosage: SINCE 2000
     Route: 065
  2. NASACORT AQ [Concomitant]
     Indication: SINUS DISORDER
     Dosage: SINCE YEARS
     Route: 065
  3. NEXIUM [Concomitant]
     Indication: GASTROOESOPHAGEAL REFLUX DISEASE
     Dosage: SINCE 2000
     Route: 065
  4. SIMVASTATIN [Concomitant]
     Indication: BLOOD CHOLESTEROL INCREASED
     Dosage: SINCE 2001
     Route: 065
  5. PENTAZOCIN [Concomitant]
     Indication: PAIN
     Dosage: 1 TABLET 3 TO 6 TIMES A DAY, SINCE 2004
     Route: 065
  6. ZYRTEC [Suspect]
     Route: 048
  7. ZYRTEC [Suspect]
     Indication: HYPERSENSITIVITY
     Route: 048
     Dates: end: 20111130
  8. LISINOPRIL [Concomitant]
     Indication: HYPERTENSION
     Dosage: SINCE 2001
     Route: 065
  9. SYMBICORT [Concomitant]
     Indication: WHEEZING
     Dosage: 2 PUFFS AS NEEDED SINCE A COUPLE OF YEARS
     Route: 065
  10. VENTOLIN [Concomitant]
     Indication: CHRONIC OBSTRUCTIVE PULMONARY DISEASE
     Dosage: 2 PUFFS, TWICE A DAY SINCE A COUPLE OF YEARS
     Route: 065

REACTIONS (4)
  - RASH MACULAR [None]
  - HAEMATOMA [None]
  - WITHDRAWAL SYNDROME [None]
  - CONTUSION [None]
